FAERS Safety Report 16892383 (Version 1)
Quarter: 2019Q4

REPORT INFORMATION
  Report Type: Spontaneous
  Country: DE (occurrence: DE)
  Receive Date: 20191007
  Receipt Date: 20191007
  Transmission Date: 20200122
  Serious: Yes (Other)
  Sender: FDA-Public Use
  Company Number: DE-BRISTOL-MYERS SQUIBB COMPANY-BMS-2018-113033

PATIENT
  Age: 52 Year
  Sex: Male

DRUGS (6)
  1. NIVOLUMAB [Suspect]
     Active Substance: NIVOLUMAB
     Indication: TUMOUR ULCERATION
     Dosage: 3 MILLIGRAM/KILOGRAM
     Route: 065
     Dates: start: 20171130
  2. IPILIMUMAB [Suspect]
     Active Substance: IPILIMUMAB
     Indication: MALIGNANT MELANOMA
     Dosage: 3 MILLIGRAM/KILOGRAM
     Route: 065
     Dates: start: 201709
  3. VEMURAFENIB. [Suspect]
     Active Substance: VEMURAFENIB
     Indication: TUMOUR ULCERATION
     Dosage: 240 MILLIGRAM, QD (8 DF)
     Route: 065
     Dates: start: 20170301, end: 201708
  4. COBIMETINIB. [Suspect]
     Active Substance: COBIMETINIB
     Indication: TUMOUR ULCERATION
     Dosage: 20 MILLIGRAM, QD (3 DF)
     Route: 065
     Dates: start: 20170301, end: 201708
  5. NIVOLUMAB [Suspect]
     Active Substance: NIVOLUMAB
     Indication: MALIGNANT MELANOMA
     Dosage: 1 MILLIGRAM/KILOGRAM
     Route: 065
     Dates: start: 201709
  6. IPILIMUMAB [Suspect]
     Active Substance: IPILIMUMAB
     Indication: TUMOUR ULCERATION
     Route: 065

REACTIONS (4)
  - Hyperthyroidism [Unknown]
  - Rash [Unknown]
  - Autoimmune colitis [Unknown]
  - Skin burning sensation [Unknown]

NARRATIVE: CASE EVENT DATE: 201710
